FAERS Safety Report 10561630 (Version 1)
Quarter: 2014Q4

REPORT INFORMATION
  Report Type: Spontaneous
  Country: US (occurrence: US)
  Receive Date: 20141103
  Receipt Date: 20141103
  Transmission Date: 20150529
  Serious: Yes (Other)
  Sender: FDA-Public Use
  Company Number: US-FRI-1000072066

PATIENT
  Sex: Female

DRUGS (1)
  1. LINZESS [Suspect]
     Active Substance: LINACLOTIDE
     Indication: CONSTIPATION
     Dosage: DAILY

REACTIONS (6)
  - Nausea [Unknown]
  - Off label use [Unknown]
  - Abdominal discomfort [Unknown]
  - Haematochezia [Unknown]
  - Feeding disorder [Unknown]
  - Abdominal pain [Unknown]
